FAERS Safety Report 23678238 (Version 2)
Quarter: 2024Q2

REPORT INFORMATION
  Report Type: Spontaneous
  Country: JP (occurrence: JP)
  Receive Date: 20240327
  Receipt Date: 20240422
  Transmission Date: 20240716
  Serious: Yes (Hospitalization)
  Sender: FDA-Public Use
  Company Number: JP-ABBVIE-5641981

PATIENT
  Age: 75 Year
  Sex: Female
  Weight: 49 kg

DRUGS (9)
  1. RINVOQ [Suspect]
     Active Substance: UPADACITINIB
     Indication: Crohn^s disease
     Dosage: FORM STRENGTH: 45 MILLIGRAM
     Route: 048
     Dates: start: 20240119, end: 20240122
  2. RINVOQ [Suspect]
     Active Substance: UPADACITINIB
     Indication: Crohn^s disease
     Dosage: 45 MILLIGRAM
     Route: 048
     Dates: start: 20231028, end: 20240118
  3. ALENDRONATE SODIUM [Concomitant]
     Active Substance: ALENDRONATE SODIUM
     Indication: Osteoporosis
     Dosage: 5 MILLIGRAM
     Route: 048
     Dates: start: 20231002, end: 20240128
  4. MESALAMINE [Concomitant]
     Active Substance: MESALAMINE
     Indication: Crohn^s disease
     Dosage: TIME INTERVAL: 0.33333333 DAYS: 3000 MILLIGRAM?FORM STRENGTH: 94 PERCENT
     Route: 048
     Dates: start: 20230411
  5. PREDNISOLONE [Suspect]
     Active Substance: PREDNISOLONE
     Indication: Crohn^s disease
     Dosage: 5 MILLIGRAM
     Route: 048
     Dates: start: 20230729, end: 20231105
  6. PREDNISOLONE [Suspect]
     Active Substance: PREDNISOLONE
     Indication: Crohn^s disease
     Dosage: 2.5 MILLIGRAM
     Route: 048
     Dates: start: 20231106, end: 20231126
  7. PREDNISOLONE [Suspect]
     Active Substance: PREDNISOLONE
     Indication: Crohn^s disease
     Route: 048
  8. Carbidopa hydrate and levodopa [Concomitant]
     Indication: Parkinson^s disease
     Dosage: TIME INTERVAL: 0.33333333 DAYS: 300 MILLIGRAM
     Route: 048
     Dates: start: 201812
  9. VONOPRAZAN FUMARATE [Concomitant]
     Active Substance: VONOPRAZAN FUMARATE
     Indication: Crohn^s disease
     Dosage: 10 MILLIGRAM
     Route: 048
     Dates: start: 20230224

REACTIONS (6)
  - Delirium [Unknown]
  - Pneumonia fungal [Recovered/Resolved with Sequelae]
  - Fungal infection [Unknown]
  - Immunosuppression [Unknown]
  - Organising pneumonia [Recovered/Resolved with Sequelae]
  - Candida endophthalmitis [Recovered/Resolved]

NARRATIVE: CASE EVENT DATE: 20240119
